FAERS Safety Report 8086995 (Version 3)
Quarter: 2013Q1

REPORT INFORMATION
  Report Type: Spontaneous
  Country: US (occurrence: US)
  Receive Date: 20110811
  Receipt Date: 20130225
  Transmission Date: 20140127
  Serious: Yes (Hospitalization)
  Sender: FDA-Public Use
  Company Number: US-BAYER-2011-070682

PATIENT
  Age: 28 Year
  Sex: Female
  Weight: 74.83 kg

DRUGS (6)
  1. YASMIN [Suspect]
     Dosage: UNK
     Dates: start: 2006, end: 2007
  2. YASMIN [Suspect]
     Dosage: UNK
     Dates: start: 2007, end: 2008
  3. YAZ [Suspect]
     Dosage: UNK
     Dates: start: 2007
  4. VITAMIN C [Concomitant]
  5. NSAID^S [Concomitant]
     Dosage: UNK
  6. VICODIN [Concomitant]

REACTIONS (7)
  - Portal vein thrombosis [Recovered/Resolved]
  - Vena cava thrombosis [Recovered/Resolved]
  - Venous thrombosis [Recovered/Resolved]
  - Pain [None]
  - Injury [None]
  - Anxiety [None]
  - Anhedonia [None]
